FAERS Safety Report 22158499 (Version 3)
Quarter: 2023Q2

REPORT INFORMATION
  Report Type: Spontaneous
  Country: EG (occurrence: EG)
  Receive Date: 20230331
  Receipt Date: 20230504
  Transmission Date: 20230722
  Serious: Yes (Other)
  Sender: FDA-Public Use
  Company Number: EG-JNJFOC-20230355629

PATIENT
  Age: 37 Year
  Sex: Male
  Weight: 78 kg

DRUGS (4)
  1. VELCADE [Suspect]
     Active Substance: BORTEZOMIB
     Indication: Plasma cell myeloma
     Dosage: UNK, 1/WEEK
     Route: 065
     Dates: start: 20221004, end: 20221227
  2. DEXAMETHASONE [Suspect]
     Active Substance: DEXAMETHASONE
     Indication: Plasma cell myeloma
     Dosage: UNK
     Route: 065
     Dates: start: 20221004, end: 20221227
  3. REVLIMID [Suspect]
     Active Substance: LENALIDOMIDE
     Indication: Plasma cell myeloma
     Dosage: UNK
     Route: 065
     Dates: start: 20221004, end: 20221227
  4. TRAMADOL [Concomitant]
     Active Substance: TRAMADOL
     Indication: Analgesic therapy
     Dosage: UNK
     Route: 065

REACTIONS (2)
  - Plasma cell myeloma [Not Recovered/Not Resolved]
  - Drug ineffective [Not Recovered/Not Resolved]

NARRATIVE: CASE EVENT DATE: 20221201
